FAERS Safety Report 5282398-8 (Version None)
Quarter: 2007Q1

REPORT INFORMATION
  Report Type: 
  Country: None (occurrence: None)
  Receive Date: 20061226
  Receipt Date: 20060731
  Transmission Date: 20070707
  Serious: No
  Sender: FDA-Public Use
  Company Number: PHEH2006US09764

PATIENT
  Age: 23 Year
  Sex: Female

DRUGS (6)
  1. ENABLEX [Suspect]
     Indication: HYPERTONIC BLADDER
     Dosage: 7.5 MG, QD
  2. GABAPENTIN [Concomitant]
  3. LEXAPRO [Concomitant]
  4. SEMPREX-D (ACRIASTINE, PSEUDOEPHEDRINE HYDROCHLORIDE) [Concomitant]
  5. HYRDOCODONE (HYDROCODONE) [Concomitant]
  6. LORAZEPAM [Concomitant]

REACTIONS (1)
  - ANORGASMIA [None]
